FAERS Safety Report 25833784 (Version 2)
Quarter: 2025Q4

REPORT INFORMATION
  Report Type: Spontaneous
  Country: US (occurrence: US)
  Receive Date: 20250923
  Receipt Date: 20251006
  Transmission Date: 20260117
  Serious: Yes (Other)
  Sender: ROCHE
  Company Number: US-ROCHE-10000392787

PATIENT
  Sex: Female
  Weight: 62.6 kg

DRUGS (7)
  1. XOLAIR PFS [Suspect]
     Active Substance: OMALIZUMAB
     Indication: Idiopathic urticaria
     Route: 058
     Dates: start: 202402
  2. XOLAIR PFS [Suspect]
     Active Substance: OMALIZUMAB
     Dosage: STRENGTH : 300 MG/2ML
     Route: 058
     Dates: start: 2023
  3. CROMOLYN [Concomitant]
     Active Substance: CROMOLYN
     Route: 048
  4. OMEPRAZOLE [Concomitant]
     Active Substance: OMEPRAZOLE
     Dosage: TAKES AT NIGHT
     Route: 048
     Dates: start: 2022
  5. DOXEPIN [Concomitant]
     Active Substance: DOXEPIN
     Route: 048
  6. AZELASTINE [Concomitant]
     Active Substance: AZELASTINE
     Dosage: ONE SPRAY, TWICE A DAY
     Route: 065
  7. ZYRTEC [Concomitant]
     Active Substance: CETIRIZINE HYDROCHLORIDE
     Route: 048

REACTIONS (2)
  - Anaphylactic reaction [Unknown]
  - Off label use [Unknown]
